FAERS Safety Report 7889569-2 (Version None)
Quarter: 2011Q4

REPORT INFORMATION
  Report Type: 
  Country: None (occurrence: None)
  Receive Date: 20111103
  Receipt Date: 20110328
  Transmission Date: 20120403
  Serious: No
  Sender: FDA-Public Use
  Company Number: US-BRISTOL-MYERS SQUIBB COMPANY-15640519

PATIENT
  Age: 76 Year
  Sex: Female
  Weight: 81 kg

DRUGS (2)
  1. KENALOG-40 [Suspect]
     Indication: ARTHRITIS
     Dosage: KENALOG-40 INJECTIONS
     Dates: start: 20110321
  2. KENALOG-40 [Suspect]
     Indication: PAIN
     Dosage: KENALOG-40 INJECTIONS
     Dates: start: 20110321

REACTIONS (6)
  - URINE OUTPUT INCREASED [None]
  - HUNGER [None]
  - DISORIENTATION [None]
  - DRY MOUTH [None]
  - BLOOD PRESSURE INCREASED [None]
  - DIZZINESS [None]
